FAERS Safety Report 4594103-9 (Version None)
Quarter: 2005Q1

REPORT INFORMATION
  Report Type: 
  Country: None (occurrence: None)
  Receive Date: 20050218
  Receipt Date: 20050210
  Transmission Date: 20050727
  Serious: Yes (Hospitalization, Other)
  Sender: FDA-Public Use
  Company Number: GBWYE420714FEB05

PATIENT
  Age: 83 Year

DRUGS (3)
  1. CARDICOR (BISOPROLOL, TABLET, 0) [Suspect]
     Indication: HYPERTENSION
     Dosage: 5 MG
     Route: 048
     Dates: start: 20031101, end: 20040310
  2. CARDICOR (BISOPROLOL, TABLET, 0) [Suspect]
     Indication: PAIN
     Dosage: 5 MG
     Route: 048
     Dates: start: 20031101, end: 20040310
  3. ATORVASTATIN (ATORVASTATIN) [Concomitant]

REACTIONS (2)
  - BRADYCARDIA [None]
  - CIRCULATORY COLLAPSE [None]
